FAERS Safety Report 5955334-6 (Version None)
Quarter: 2008Q4

REPORT INFORMATION
  Report Type: 
  Country: None (occurrence: None)
  Receive Date: 20081112
  Receipt Date: 20081103
  Transmission Date: 20090506
  Serious: Yes (Other)
  Sender: FDA-Public Use
  Company Number: 2008AP003000

PATIENT
  Sex: Female

DRUGS (1)
  1. RISPERDAL [Suspect]
     Indication: DRUG USE FOR UNKNOWN INDICATION
     Dosage: 1 MG; BID
     Dates: start: 20080101

REACTIONS (5)
  - AMENORRHOEA [None]
  - BLOOD PROLACTIN INCREASED [None]
  - GALACTORRHOEA [None]
  - HAIR GROWTH ABNORMAL [None]
  - WEIGHT INCREASED [None]
